FAERS Safety Report 23698010 (Version 3)
Quarter: 2024Q2

REPORT INFORMATION
  Report Type: Spontaneous
  Country: TR (occurrence: TR)
  Receive Date: 20240402
  Receipt Date: 20240522
  Transmission Date: 20240716
  Serious: Yes (Other)
  Sender: FDA-Public Use
  Company Number: TR-MYLANLABS-2024M1019506

PATIENT
  Age: 56 Year
  Sex: Female

DRUGS (1)
  1. XANAX [Suspect]
     Active Substance: ALPRAZOLAM
     Indication: Insomnia
     Dosage: 1 MILLIGRAM, QD (STARTED USING IT 4 MONTHS AGO; STOPPED 3 MONTHS AGO)
     Route: 048

REACTIONS (8)
  - Urinary tract obstruction [Recovered/Resolved]
  - Haemorrhage urinary tract [Recovered/Resolved]
  - Hallucination [Recovered/Resolved]
  - Hypertension [Recovered/Resolved]
  - Memory impairment [Recovered/Resolved]
  - Feeling abnormal [Unknown]
  - Fear [Unknown]
  - Off label use [Unknown]
